FAERS Safety Report 18229953 (Version 3)
Quarter: 2020Q4

REPORT INFORMATION
  Report Type: Report from Study
  Country: US (occurrence: US)
  Receive Date: 20200903
  Receipt Date: 20201221
  Transmission Date: 20210113
  Serious: Yes (Hospitalization)
  Sender: FDA-Public Use
  Company Number: US-EISAI MEDICAL RESEARCH-EC-2020-079409

PATIENT
  Age: 67 Year
  Sex: Female
  Weight: 110 kg

DRUGS (14)
  1. LENVIMA [Suspect]
     Active Substance: LENVATINIB
     Route: 048
     Dates: start: 20201005, end: 2020
  2. LISINOPRIL. [Concomitant]
     Active Substance: LISINOPRIL
  3. VALACYCLOVIR [Concomitant]
     Active Substance: VALACYCLOVIR HYDROCHLORIDE
  4. KLOR-CON [Concomitant]
     Active Substance: POTASSIUM CHLORIDE
  5. LEVOTHYROXINE. [Concomitant]
     Active Substance: LEVOTHYROXINE
  6. LENVIMA [Suspect]
     Active Substance: LENVATINIB
     Indication: THYROID CANCER
     Route: 048
     Dates: start: 201708, end: 20200915
  7. LENVIMA [Suspect]
     Active Substance: LENVATINIB
     Route: 048
     Dates: start: 202009, end: 2020
  8. TYLENOL [Concomitant]
     Active Substance: ACETAMINOPHEN
  9. BUPROPION. [Concomitant]
     Active Substance: BUPROPION
  10. GLIPIZIDE. [Concomitant]
     Active Substance: GLIPIZIDE
  11. FLUAD QUAD [Concomitant]
  12. SHINGRIX [Concomitant]
     Active Substance: RECOMBINANT VARICELLA ZOSTER VIRUS (VZV) GLYCOPROTEIN E
  13. NADOLOL. [Concomitant]
     Active Substance: NADOLOL
  14. LENVIMA [Suspect]
     Active Substance: LENVATINIB
     Route: 048
     Dates: start: 2020, end: 2020

REACTIONS (16)
  - Malaise [Unknown]
  - Headache [Recovering/Resolving]
  - Feeding disorder [Recovered/Resolved]
  - Gait inability [Recovered/Resolved]
  - Impaired quality of life [Unknown]
  - Vomiting [Recovering/Resolving]
  - Nausea [Recovering/Resolving]
  - Skin ulcer haemorrhage [Recovered/Resolved]
  - Weight decreased [Recovered/Resolved]
  - Asthenia [Unknown]
  - Dehydration [Recovered/Resolved]
  - Blister [Unknown]
  - Hypertension [Recovering/Resolving]
  - Diarrhoea [Recovering/Resolving]
  - Muscle twitching [Recovering/Resolving]
  - Malaise [Unknown]

NARRATIVE: CASE EVENT DATE: 2020
